FAERS Safety Report 10186001 (Version 4)
Quarter: 2014Q3

REPORT INFORMATION
  Report Type: Spontaneous
  Country: JP (occurrence: JP)
  Receive Date: 20140521
  Receipt Date: 20140829
  Transmission Date: 20150326
  Serious: Yes (Death, Life-Threatening, Hospitalization)
  Sender: FDA-Public Use
  Company Number: JP-BRISTOL-MYERS SQUIBB COMPANY-19896844

PATIENT
  Age: 62 Year
  Sex: Male
  Weight: 48 kg

DRUGS (7)
  1. POLARAMINE [Concomitant]
     Active Substance: DEXCHLORPHENIRAMINE MALEATE
     Indication: PREMEDICATION
     Dosage: 15NOV13-22NOV13?06DEC13-20DEC13(14 DAYS)
     Route: 065
     Dates: start: 20131115, end: 20131220
  2. NORMAL SALINE [Concomitant]
     Active Substance: SODIUM CHLORIDE
     Indication: PREMEDICATION
     Dosage: 15NOV13-22NOV13?06DEC13-20DEC13(14 DAYS)
     Route: 065
     Dates: start: 20131115, end: 20131220
  3. ERBITUX [Suspect]
     Active Substance: CETUXIMAB
     Indication: HYPOPHARYNGEAL CANCER
     Dosage: 22NOV13-22NOV13: 400 MG?06DEC13-20DEC13 (14 DAYS).
     Route: 041
     Dates: start: 20131115, end: 20131220
  4. DEXART [Concomitant]
     Active Substance: DEXAMETHASONE SODIUM PHOSPHATE
     Indication: PREMEDICATION
     Dosage: 15NOV13-22NOV13?06DEC13-20DEC13(14 DAYS)
     Route: 065
     Dates: start: 20131115, end: 20131220
  5. MAXIPIME [Suspect]
     Active Substance: CEFEPIME HYDROCHLORIDE
     Indication: PYREXIA
     Dosage: 27NOV13-06DEC13?24DEC13-27DEC13: 3 DAYS
     Route: 041
     Dates: start: 20131127, end: 20131227
  6. MEROPEN [Concomitant]
     Active Substance: MEROPENEM
     Route: 041
     Dates: start: 20131227
  7. CRAVIT [Concomitant]
     Active Substance: LEVOFLOXACIN
     Route: 041
     Dates: start: 20131227

REACTIONS (22)
  - Pseudomonas test positive [None]
  - Hypernatraemia [None]
  - Candida infection [None]
  - Alanine aminotransferase increased [None]
  - Radiation pneumonitis [None]
  - Ventricular tachycardia [Fatal]
  - Cardiac failure [Recovered/Resolved]
  - Intervertebral discitis [None]
  - Spondylitis [None]
  - Multi-organ failure [None]
  - General physical health deterioration [None]
  - Staphylococcus test positive [None]
  - Aspartate aminotransferase increased [None]
  - Blood bilirubin increased [None]
  - Pulmonary thrombosis [None]
  - Altered state of consciousness [None]
  - Infection [Recovering/Resolving]
  - Deep vein thrombosis [None]
  - Liver disorder [Recovered/Resolved]
  - Renal disorder [Recovered/Resolved]
  - Corynebacterium test positive [None]
  - Bilirubin conjugated increased [None]

NARRATIVE: CASE EVENT DATE: 20131227
